FAERS Safety Report 4368389-X (Version None)
Quarter: 2004Q2

REPORT INFORMATION
  Report Type: 
  Country: None (occurrence: None)
  Receive Date: 20040602
  Receipt Date: 20040528
  Transmission Date: 20050107
  Serious: Yes (Other)
  Sender: FDA-Public Use
  Company Number: US-GLAXOSMITHKLINE-A0512634A

PATIENT
  Sex: Female

DRUGS (3)
  1. ADVAIR DISKUS 100/50 [Suspect]
     Indication: ASTHMA
     Dosage: 1PUFF TWICE PER DAY
     Route: 055
     Dates: start: 20030101, end: 20040101
  2. FLONASE [Suspect]
     Indication: RHINITIS ALLERGIC
     Route: 045
  3. FLOVENT [Suspect]
     Indication: ASTHMA
     Dosage: 110MCG TWICE PER DAY
     Route: 055
     Dates: start: 19980101, end: 20030101

REACTIONS (6)
  - COUGH [None]
  - DYSPNOEA [None]
  - INFLUENZA [None]
  - NERVOUSNESS [None]
  - PNEUMONIA [None]
  - SENSORY DISTURBANCE [None]
